FAERS Safety Report 6981353-7 (Version None)
Quarter: 2010Q3

REPORT INFORMATION
  Report Type: 
  Country: None (occurrence: None)
  Receive Date: 20100914
  Receipt Date: 20100831
  Transmission Date: 20110219
  Serious: Yes (Hospitalization)
  Sender: FDA-Public Use
  Company Number: US-MYLANLABS-2010S1015993

PATIENT
  Age: 80 Year
  Sex: Female

DRUGS (6)
  1. LEVETIRACETAM [Suspect]
     Indication: GRAND MAL CONVULSION
     Route: 065
  2. AMLODIPINE [Concomitant]
     Indication: HYPERTENSION
     Route: 065
  3. TELMISARTAN [Concomitant]
     Indication: HYPERTENSION
     Route: 065
  4. LEVOTHYROXINE SODIUM [Concomitant]
     Indication: HYPOTHYROIDISM
     Route: 065
  5. SERTRALINE HYDROCHLORIDE [Concomitant]
     Indication: DEPRESSION
     Route: 065
  6. SERTRALINE HYDROCHLORIDE [Concomitant]
     Route: 065

REACTIONS (1)
  - DELIRIUM [None]
